FAERS Safety Report 9222476 (Version 2)
Quarter: 2013Q2

REPORT INFORMATION
  Report Type: Spontaneous
  Country: IT (occurrence: IT)
  Receive Date: 20130410
  Receipt Date: 20130501
  Transmission Date: 20140414
  Serious: Yes (Other)
  Sender: FDA-Public Use
  Company Number: IT-BRISTOL-MYERS SQUIBB COMPANY-18732255

PATIENT
  Age: 82 Year
  Sex: Male

DRUGS (6)
  1. COUMADIN TABS 5 MG [Suspect]
     Indication: ATRIAL FIBRILLATION
     Dosage: INTERUPTED ON 20MAR2013, RESTARTED
     Route: 048
     Dates: start: 20120820
  2. METOPROLOL [Concomitant]
  3. ZYLORIC [Concomitant]
  4. VALPRESSION [Concomitant]
  5. LIBRADIN [Concomitant]
  6. NOVONORM [Concomitant]

REACTIONS (2)
  - Fall [Unknown]
  - Haematoma [Recovering/Resolving]
